FAERS Safety Report 21992936 (Version 1)
Quarter: 2023Q1

REPORT INFORMATION
  Report Type: Spontaneous
  Country: US (occurrence: US)
  Receive Date: 20230215
  Receipt Date: 20230215
  Transmission Date: 20230417
  Serious: No
  Sender: FDA-Public Use
  Company Number: US-ELI_LILLY_AND_COMPANY-US202302004753

PATIENT
  Age: 48 Year
  Sex: Female

DRUGS (1)
  1. OLUMIANT [Suspect]
     Active Substance: BARICITINIB
     Indication: Alopecia areata
     Dosage: 2 MG, DAILY (2/D) (TWO 2MG  DAILY)
     Route: 048
     Dates: start: 20230115

REACTIONS (2)
  - Increased appetite [Unknown]
  - Acne [Unknown]

NARRATIVE: CASE EVENT DATE: 20230120
